FAERS Safety Report 22915920 (Version 2)
Quarter: 2023Q4

REPORT INFORMATION
  Report Type: Spontaneous
  Country: US (occurrence: US)
  Receive Date: 20230907
  Receipt Date: 20231029
  Transmission Date: 20240110
  Serious: Yes (Hospitalization, Other)
  Sender: FDA-Public Use
  Company Number: None

PATIENT
  Age: 54 Year
  Sex: Male

DRUGS (13)
  1. GABAPENTIN [Suspect]
     Active Substance: GABAPENTIN
     Indication: Neuropathy peripheral
     Dosage: UNK, DAILY
     Route: 065
  2. CHLORDIAZEPOXIDE [Suspect]
     Active Substance: CHLORDIAZEPOXIDE
     Indication: Alcohol withdrawal syndrome
     Dosage: 800 MILLIGRAM, TOTAL, OVER THE 24 H LEADING UP TO HIS FINAL DOSE
     Route: 048
  3. LORAZEPAM [Suspect]
     Active Substance: LORAZEPAM
     Indication: Alcohol withdrawal syndrome
     Dosage: UNK
     Route: 042
  4. ATORVASTATIN [Suspect]
     Active Substance: ATORVASTATIN
     Indication: Product used for unknown indication
     Dosage: UNK
     Route: 065
  5. ACETAMINOPHEN [Suspect]
     Active Substance: ACETAMINOPHEN
     Indication: Product used for unknown indication
     Dosage: UNK
     Route: 065
  6. DULOXETINE [Suspect]
     Active Substance: DULOXETINE
     Indication: Major depression
     Dosage: UNK
     Route: 065
  7. ASPIRIN [Suspect]
     Active Substance: ASPIRIN
     Indication: Product used for unknown indication
     Dosage: UNK
     Route: 065
  8. ACAMPROSATE [Suspect]
     Active Substance: ACAMPROSATE
     Indication: Alcohol use disorder
     Dosage: UNK
     Route: 048
  9. METOPROLOL [Suspect]
     Active Substance: METOPROLOL
     Indication: Product used for unknown indication
     Dosage: UNK
     Route: 065
  10. NALTREXONE [Suspect]
     Active Substance: NALTREXONE
     Indication: Alcohol use disorder
     Dosage: UNK (LONG-ACTING )
     Route: 065
  11. THIAMINE [Concomitant]
     Active Substance: THIAMINE
     Indication: Alcohol detoxification
     Dosage: UNK
     Route: 048
  12. THIAMINE [Concomitant]
     Active Substance: THIAMINE
     Dosage: UNK
     Route: 030
  13. INSULIN NOS [Concomitant]
     Active Substance: INSULIN NOS
     Indication: Type 2 diabetes mellitus
     Dosage: UNK
     Route: 065

REACTIONS (1)
  - Delirium [Unknown]
